FAERS Safety Report 9497463 (Version 1)
Quarter: 2013Q3

REPORT INFORMATION
  Report Type: Spontaneous
  Country: GB (occurrence: None)
  Receive Date: 20130830
  Receipt Date: 20130830
  Transmission Date: 20140515
  Serious: Yes (Hospitalization)
  Sender: FDA-Public Use
  Company Number: AUR-APL-2013-07055

PATIENT
  Age: 22 Year
  Sex: Male
  Weight: 88.9 kg

DRUGS (2)
  1. CIPROFLOXACIN [Suspect]
     Indication: URINARY TRACT INFECTION
     Route: 048
     Dates: start: 20120806, end: 20120809
  2. SILDENAFIL (SILDENAFIL) [Concomitant]

REACTIONS (3)
  - Paranoia [None]
  - Agitation [None]
  - Erectile dysfunction [None]
